FAERS Safety Report 4452269-5 (Version None)
Quarter: 2004Q3

REPORT INFORMATION
  Report Type: 
  Country: None (occurrence: None)
  Receive Date: 20040917
  Receipt Date: 20040726
  Transmission Date: 20050211
  Serious: Yes (Hospitalization)
  Sender: FDA-Public Use
  Company Number: PHHO2004US10662

PATIENT
  Age: 35 Year
  Sex: Male
  Weight: 153 kg

DRUGS (6)
  1. FTY720 VS MYCOPHENOLATE MOFETIL [Suspect]
     Indication: RENAL TRANSPLANT
     Dosage: CODE NOT BROKEN
     Route: 048
     Dates: start: 20040615, end: 20040723
  2. NEORAL [Suspect]
     Indication: RENAL TRANSPLANT
     Dosage: NOT REPORTED
     Route: 048
     Dates: end: 20040724
  3. NEORAL [Suspect]
     Dosage: 600 MG, BID
     Route: 048
     Dates: start: 20040725
  4. NEORAL [Suspect]
     Dosage: 625 MG, BID
     Route: 048
     Dates: start: 20040726
  5. NEORAL [Suspect]
     Dosage: DECREASED TO 200 MG BID
     Route: 048
  6. ALTACE [Suspect]
     Indication: HYPERTENSION
     Dates: start: 20040618, end: 20040723

REACTIONS (5)
  - ANGIONEUROTIC OEDEMA [None]
  - BLOOD CREATININE INCREASED [None]
  - HEPATITIS [None]
  - LIVER FUNCTION TEST ABNORMAL [None]
  - NEPHROPATHY TOXIC [None]
